FAERS Safety Report 5620031-3 (Version None)
Quarter: 2008Q1

REPORT INFORMATION
  Report Type: 
  Country: None (occurrence: None)
  Receive Date: 20080208
  Receipt Date: 20071218
  Transmission Date: 20080703
  Serious: Yes (Life-Threatening, Hospitalization)
  Sender: FDA-Public Use
  Company Number: ZA-JNJFOC-20071204918

PATIENT
  Age: 34 Year
  Sex: Female

DRUGS (6)
  1. HALOPERIDOL [Suspect]
     Indication: PSYCHOTIC DISORDER
  2. HALOPERIDOL [Suspect]
     Indication: MAJOR DEPRESSION
  3. RISPERIDONE [Suspect]
     Indication: PSYCHOTIC DISORDER
  4. RISPERIDONE [Suspect]
     Indication: MAJOR DEPRESSION
  5. FLUOXETINE [Suspect]
     Indication: PSYCHOTIC DISORDER
  6. FLUOXETINE [Suspect]
     Indication: MAJOR DEPRESSION

REACTIONS (4)
  - DEPRESSED MOOD [None]
  - INFLUENZA LIKE ILLNESS [None]
  - SOCIAL AVOIDANT BEHAVIOUR [None]
  - TOXIC EPIDERMAL NECROLYSIS [None]
